FAERS Safety Report 17083410 (Version 3)
Quarter: 2020Q1

REPORT INFORMATION
  Report Type: Spontaneous
  Country: US (occurrence: US)
  Receive Date: 20191127
  Receipt Date: 20200316
  Transmission Date: 20200409
  Serious: No
  Sender: FDA-Public Use
  Company Number: US-SA-2019SA323648

PATIENT
  Sex: Male

DRUGS (2)
  1. CERDELGA [Suspect]
     Active Substance: ELIGLUSTAT
     Indication: PRODUCT USE IN UNAPPROVED INDICATION
  2. CERDELGA [Suspect]
     Active Substance: ELIGLUSTAT
     Indication: GAUCHER^S DISEASE
     Dosage: 84 MG, BID
     Route: 048
     Dates: start: 20160813

REACTIONS (2)
  - Product use in unapproved indication [Unknown]
  - Product dose omission [Unknown]
